FAERS Safety Report 10035600 (Version 2)
Quarter: 2014Q2

REPORT INFORMATION
  Report Type: Spontaneous
  Country: US (occurrence: US)
  Receive Date: 20140325
  Receipt Date: 20140424
  Transmission Date: 20141212
  Serious: No
  Sender: FDA-Public Use
  Company Number: US-009507513-1403USA007325

PATIENT
  Age: 89 Year
  Sex: Female

DRUGS (3)
  1. OXYTROL FOR WOMEN [Suspect]
     Indication: INCONTINENCE
     Dosage: UNK, UNKNOWN
     Route: 062
     Dates: start: 201401, end: 201402
  2. AROMASIN [Concomitant]
     Indication: BREAST CANCER
     Dosage: UNK, UNKNOWN
  3. LYRICA [Concomitant]
     Indication: NEUROPATHY PERIPHERAL
     Dosage: UNK, UNKNOWN

REACTIONS (3)
  - Application site rash [Recovered/Resolved]
  - Application site pruritus [Recovered/Resolved]
  - Application site erythema [Recovered/Resolved]
